FAERS Safety Report 9840246 (Version 2)
Quarter: 2014Q1

REPORT INFORMATION
  Report Type: Spontaneous
  Country: JP (occurrence: JP)
  Receive Date: 20140124
  Receipt Date: 20140206
  Transmission Date: 20141002
  Serious: Yes (Life-Threatening)
  Sender: FDA-Public Use
  Company Number: JP-JNJFOC-20140109600

PATIENT
  Age: 66 Year
  Sex: Male
  Weight: 47.62 kg

DRUGS (5)
  1. XARELTO [Suspect]
     Indication: CEREBROVASCULAR ACCIDENT PROPHYLAXIS
     Dosage: OM (ONCE IN THE MORNING)
     Route: 048
     Dates: start: 20131226, end: 20131231
  2. XARELTO [Suspect]
     Indication: ATRIAL FIBRILLATION
     Dosage: OM (ONCE IN THE MORNING)
     Route: 048
     Dates: start: 20131226, end: 20131231
  3. UNFRACTIONATED HEPARIN [Concomitant]
     Route: 065
     Dates: start: 20131003, end: 20131226
  4. TAKEPRON [Concomitant]
     Route: 048
     Dates: start: 20131003
  5. MAGMITT [Concomitant]
     Route: 048
     Dates: start: 20131003

REACTIONS (2)
  - Haematuria [Recovering/Resolving]
  - Renal failure [Recovering/Resolving]
